FAERS Safety Report 5968416-X (Version None)
Quarter: 2008Q4

REPORT INFORMATION
  Report Type: 
  Country: None (occurrence: None)
  Receive Date: 20081126
  Receipt Date: 20081120
  Transmission Date: 20090506
  Serious: Yes (Hospitalization)
  Sender: FDA-Public Use
  Company Number: NO-ASTRAZENECA-2008SE05409

PATIENT
  Age: 47 Year
  Sex: Female

DRUGS (4)
  1. ATACAND HCT [Suspect]
     Indication: HYPERTENSION
     Route: 048
     Dates: start: 20080923, end: 20081014
  2. ADALAT [Suspect]
     Indication: HYPERTENSION
     Route: 048
     Dates: start: 20080923, end: 20081014
  3. LIPITOR [Suspect]
     Indication: HYPERTENSION
     Route: 048
     Dates: start: 20080923, end: 20081014
  4. PLAVIX [Suspect]
     Indication: CARDIOVASCULAR EVENT PROPHYLAXIS
     Route: 048
     Dates: start: 20080923, end: 20081014

REACTIONS (1)
  - HEPATITIS TOXIC [None]
